FAERS Safety Report 4760616-X (Version None)
Quarter: 2005Q3

REPORT INFORMATION
  Report Type: 
  Country: None (occurrence: None)
  Receive Date: 20050826
  Receipt Date: 20050131
  Transmission Date: 20060218
  Serious: Yes (Other)
  Sender: FDA-Public Use
  Company Number: USA-2005-0018652

PATIENT
  Sex: Female

DRUGS (3)
  1. OXYCODONE HCL [Suspect]
  2. XANAX [Suspect]
  3. ALCOHOL (ETHANOL) [Suspect]

REACTIONS (1)
  - POLYSUBSTANCE ABUSE [None]
